FAERS Safety Report 9639773 (Version 1)
Quarter: 2013Q4

REPORT INFORMATION
  Report Type: Spontaneous
  Country: RU (occurrence: RU)
  Receive Date: 20131023
  Receipt Date: 20131023
  Transmission Date: 20140711
  Serious: Yes (Hospitalization)
  Sender: FDA-Public Use
  Company Number: RU-ASTRAZENECA-2013SE76319

PATIENT
  Age: 28 Year
  Sex: Male

DRUGS (1)
  1. NEXIUM IV [Suspect]
     Indication: DUODENAL ULCER
     Route: 042
     Dates: start: 2013, end: 2013

REACTIONS (1)
  - Drug ineffective [Recovering/Resolving]
